FAERS Safety Report 4442808-2 (Version None)
Quarter: 2004Q3

REPORT INFORMATION
  Report Type: 
  Country: None (occurrence: None)
  Receive Date: 20040903
  Receipt Date: 20040715
  Transmission Date: 20050211
  Serious: Yes (Other)
  Sender: FDA-Public Use
  Company Number: 2004UW11871

PATIENT
  Age: 38 Year
  Sex: Female
  Weight: 63.9572 kg

DRUGS (3)
  1. CRESTOR [Suspect]
     Indication: BLOOD CHOLESTEROL INCREASED
     Dosage: 10 MG PO
     Route: 048
     Dates: start: 20040510
  2. METFORMIN HCL [Concomitant]
  3. ATENOLOL [Concomitant]

REACTIONS (2)
  - SINUS TACHYCARDIA [None]
  - THROAT TIGHTNESS [None]
